FAERS Safety Report 9433929 (Version 2)
Quarter: 2013Q4

REPORT INFORMATION
  Report Type: Spontaneous
  Country: GB (occurrence: GB)
  Receive Date: 20130801
  Receipt Date: 20131104
  Transmission Date: 20140711
  Serious: Yes (Hospitalization, Other)
  Sender: FDA-Public Use
  Company Number: PHHY2013GB078857

PATIENT
  Age: 79 Year
  Sex: Female
  Weight: 61 kg

DRUGS (13)
  1. LEFLUNOMIDE [Suspect]
     Indication: RHEUMATOID ARTHRITIS
     Dosage: 10 MG, UNK
     Route: 048
     Dates: start: 20130523, end: 20130605
  2. AMLODIPINE [Concomitant]
  3. CITALOPRAM [Concomitant]
  4. DIPYRIDAMOLE [Concomitant]
  5. IBUPROFEN [Concomitant]
  6. ASPIRIN [Concomitant]
  7. PREDNISOLONE [Concomitant]
  8. EZETIMIBE [Concomitant]
  9. PARACETAMOL [Concomitant]
  10. TEMAZEPAM [Concomitant]
  11. OMEPRAZOLE [Concomitant]
  12. FENTANYL [Concomitant]
  13. GOLD [Concomitant]

REACTIONS (12)
  - Pulmonary embolism [Unknown]
  - Condition aggravated [Unknown]
  - Respiratory failure [Unknown]
  - Fatigue [Unknown]
  - Hypoxia [Unknown]
  - Dizziness [Unknown]
  - Productive cough [Unknown]
  - Malaise [Unknown]
  - Pulmonary fibrosis [Unknown]
  - Chest pain [Unknown]
  - Dyspnoea [Unknown]
  - Pneumonitis [Recovering/Resolving]
